FAERS Safety Report 4380332-6 (Version None)
Quarter: 2004Q2

REPORT INFORMATION
  Report Type: 
  Country: None (occurrence: None)
  Receive Date: 20040614
  Receipt Date: 20040601
  Transmission Date: 20050107
  Serious: Yes (Hospitalization)
  Sender: FDA-Public Use
  Company Number: 2004037162

PATIENT
  Age: 59 Year
  Sex: Female
  Weight: 52 kg

DRUGS (11)
  1. AMLODIPINE [Suspect]
     Indication: ILL-DEFINED DISORDER
     Dosage: 1 IN 1 D, ORAL
     Route: 048
  2. FUROSEMIDE [Suspect]
     Indication: ILL-DEFINED DISORDER
     Dosage: 40 MG (40 MG 1 IN 1 D) ORAL
     Route: 048
  3. CARBAMAZEPINE [Suspect]
     Indication: ILL-DEFINED DISORDER
     Dosage: 200 MG (200 MG 1 IN 1 D) ORAL
     Route: 048
  4. CELIPROLOL (CELIPROLOL) [Suspect]
     Indication: ILL-DEFINED DISORDER
     Dosage: 1 IN 1 D ORAL
     Route: 048
  5. RILMENIDINE (RILMENIDINE) [Suspect]
     Indication: ILL-DEFINED DISORDER
     Dosage: 1 IN 1 D ORAL
     Route: 048
  6. IRBESARTAN (IRBESARTAN) [Suspect]
     Indication: ILL-DEFINED DISORDER
     Dosage: 300 MG (300 MG 1 IN 1 D) ORAL
     Route: 048
  7. SODIUM BICARBONATE IN PLASTIC CONTAINER [Concomitant]
  8. CALCIUM CARBONATE (CALCIUM CARBONATE) [Concomitant]
  9. AMITRIPTYLINE HYDROCHLORIDE [Concomitant]
  10. SODIUM POLYSTYRENE SULFONATE (SODIUM POLYSTYRENE SULFONATE) [Concomitant]
  11. DARBEPOETIN ALFA (DARBEPOETIN ALFA) [Concomitant]

REACTIONS (7)
  - ANXIETY [None]
  - BLOOD CREATININE INCREASED [None]
  - BLOOD PRESSURE INCREASED [None]
  - ELECTROCARDIOGRAM T WAVE PEAKED [None]
  - HYPERKALAEMIA [None]
  - LOSS OF CONSCIOUSNESS [None]
  - MALAISE [None]
